FAERS Safety Report 7376763-2 (Version None)
Quarter: 2011Q1

REPORT INFORMATION
  Report Type: 
  Country: None (occurrence: None)
  Receive Date: 20110325
  Receipt Date: 20110322
  Transmission Date: 20110831
  Serious: Yes (Other)
  Sender: FDA-Public Use
  Company Number: KZ-ABBOTT-11P-230-0713722-00

PATIENT
  Age: 57 Year
  Sex: Male

DRUGS (3)
  1. DEPAKENE [Suspect]
     Route: 048
     Dates: start: 20091228, end: 20100121
  2. DEPAKENE [Suspect]
  3. DEPAKENE [Suspect]
     Indication: EPILEPSY
     Route: 048
     Dates: start: 20080101, end: 20090101

REACTIONS (3)
  - PRODUCT SUBSTITUTION ISSUE [None]
  - CONVULSION [None]
  - DRUG INEFFECTIVE [None]
